FAERS Safety Report 18603332 (Version 1)
Quarter: 2020Q4

REPORT INFORMATION
  Report Type: Report from Study
  Country: US (occurrence: US)
  Receive Date: 20201210
  Receipt Date: 20201210
  Transmission Date: 20210114
  Serious: Yes (Hospitalization, Other)
  Sender: FDA-Public Use
  Company Number: US-EXELIXIS-XL18420035682

PATIENT

DRUGS (3)
  1. NIVOLUMAB [Suspect]
     Active Substance: NIVOLUMAB
     Indication: RENAL CELL CARCINOMA
     Dosage: 286 MG
     Route: 042
     Dates: start: 20200901
  2. IPILIMUMAB [Suspect]
     Active Substance: IPILIMUMAB
     Indication: RENAL CELL CARCINOMA
     Dosage: 96 MG
     Route: 042
     Dates: start: 20200901
  3. XL184 [Suspect]
     Active Substance: CABOZANTINIB
     Indication: RENAL CELL CARCINOMA
     Dosage: UNK

REACTIONS (7)
  - Dysarthria [Unknown]
  - Transient ischaemic attack [Unknown]
  - Facial paresis [Unknown]
  - Gait disturbance [Unknown]
  - Aspartate aminotransferase increased [Unknown]
  - Immune-mediated hepatitis [Unknown]
  - Hypoalbuminaemia [Unknown]

NARRATIVE: CASE EVENT DATE: 20201028
